FAERS Safety Report 5881588-0 (Version None)
Quarter: 2008Q3

REPORT INFORMATION
  Report Type: 
  Country: None (occurrence: None)
  Receive Date: 20080912
  Receipt Date: 20080707
  Transmission Date: 20090109
  Serious: No
  Sender: FDA-Public Use
  Company Number: US-ABBOTT-08P-163-0460887-00

PATIENT
  Sex: Male
  Weight: 127 kg

DRUGS (3)
  1. HUMIRA [Suspect]
     Indication: PSORIATIC ARTHROPATHY
     Route: 058
     Dates: start: 20060801, end: 20080625
  2. HUMIRA [Suspect]
     Dates: start: 20080625
  3. IBUPROFEN [Concomitant]
     Indication: PAIN
     Dosage: 200MILLIGRAM X4 AS NEEDED
     Route: 048

REACTIONS (1)
  - ARTHRALGIA [None]
